FAERS Safety Report 20088025 (Version 1)
Quarter: 2021Q4

REPORT INFORMATION
  Report Type: Spontaneous
  Country: FR (occurrence: FR)
  Receive Date: 20211118
  Receipt Date: 20211118
  Transmission Date: 20220303
  Serious: Yes (Other)
  Sender: FDA-Public Use
  Company Number: FR-PFIZER INC-2020458547

PATIENT
  Age: 50 Year
  Sex: Female
  Weight: 63 kg

DRUGS (3)
  1. LORLATINIB [Interacting]
     Active Substance: LORLATINIB
     Indication: Metastatic bronchial carcinoma
     Dosage: 25 MG, 4X/DAY
     Route: 048
     Dates: start: 20200331, end: 20210121
  2. ESOMEPRAZOLE [Interacting]
     Active Substance: ESOMEPRAZOLE
     Indication: Cardiac disorder
     Dosage: 20 MG, 1X/DAY (IN THE EVENING)
     Route: 048
     Dates: start: 201905
  3. LEVOTHYROXINE [Concomitant]
     Active Substance: LEVOTHYROXINE
     Indication: Hypothyroidism
     Dosage: 75 UG, 1X/DAY
     Route: 048

REACTIONS (5)
  - Second primary malignancy [Unknown]
  - Malignant melanoma of sites other than skin [Recovered/Resolved]
  - Hypercholesterolaemia [Not Recovered/Not Resolved]
  - Drug interaction [Not Recovered/Not Resolved]
  - Weight increased [Not Recovered/Not Resolved]

NARRATIVE: CASE EVENT DATE: 20200410
